FAERS Safety Report 8758124 (Version 1)
Quarter: 2012Q4

REPORT INFORMATION
  Report Type: 
  Country: DE (occurrence: DE)
  Receive Date: 20120829
  Receipt Date: 20120829
  Transmission Date: 20130627
  Serious: Yes (Other)
  Sender: FDA-Public Use
  Company Number: DE-UCBSA-063971

PATIENT
  Age: 52 Year
  Sex: Female

DRUGS (2)
  1. VIMPAT [Suspect]
     Dosage: 400 MG
  2. KEPPRA [Suspect]
     Dosage: 5000 MG

REACTIONS (2)
  - Status epilepticus [Unknown]
  - Overdose [Unknown]
